FAERS Safety Report 5551119-3 (Version None)
Quarter: 2007Q4

REPORT INFORMATION
  Report Type: 
  Country: None (occurrence: None)
  Receive Date: 20071212
  Receipt Date: 20071207
  Transmission Date: 20080405
  Serious: Yes (Other)
  Sender: FDA-Public Use
  Company Number: B0494292A

PATIENT
  Age: 22 Year
  Sex: Male

DRUGS (1)
  1. VALTREX [Suspect]
     Indication: KAPOSI'S VARICELLIFORM ERUPTION
     Dosage: 500MG TWICE PER DAY
     Route: 048
     Dates: start: 20071102, end: 20071102

REACTIONS (3)
  - ALTERED STATE OF CONSCIOUSNESS [None]
  - PORIOMANIA [None]
  - RESTLESSNESS [None]
